FAERS Safety Report 10579491 (Version 3)
Quarter: 2015Q2

REPORT INFORMATION
  Report Type: Spontaneous
  Country: US (occurrence: US)
  Receive Date: 20141112
  Receipt Date: 20150612
  Transmission Date: 20150821
  Serious: Yes (Hospitalization)
  Sender: FDA-Public Use
  Company Number: US-BAYER-2014-166374

PATIENT
  Age: 20 Year
  Sex: Female
  Weight: 64.63 kg

DRUGS (8)
  1. METRONIDAZOLE. [Concomitant]
     Active Substance: METRONIDAZOLE
     Dosage: 0.75 %, H, 1 APPLICATOR FOR 7 NIGHT
     Dates: start: 20100408
  2. IBUPROFEN. [Concomitant]
     Active Substance: IBUPROFEN
     Dosage: 600 MG, PRN, EVERY 6 HOURS
     Dates: start: 20100408
  3. PROPOXYPHENE NAPSYLATE W/ACETAMINOPHENE [Concomitant]
     Active Substance: ACETAMINOPHEN\PROPOXYPHENE NAPSYLATE
     Dosage: 100-650 MG 8 HOURS
     Dates: start: 20100408
  4. CEPHALEXIN. [Concomitant]
     Active Substance: CEPHALEXIN
     Dosage: 500 MG, TID
     Dates: start: 20100408
  5. MIRENA [Suspect]
     Active Substance: LEVONORGESTREL
     Indication: CONTRACEPTION
     Dosage: 20 MCG/24HR, CONT
     Route: 015
     Dates: start: 20100317, end: 20100428
  6. NITROFURANTOIN. [Concomitant]
     Active Substance: NITROFURANTOIN
     Dosage: 100 MG,EVERY 12 HOURS
     Dates: start: 20100408
  7. AMOXICILLIN. [Concomitant]
     Active Substance: AMOXICILLIN
     Dosage: 875 MG,EVERY 12 HOURS DAILY
     Dates: start: 20100408
  8. NAPROXEN. [Concomitant]
     Active Substance: NAPROXEN
     Dosage: 500 MG, PRN, EVERY 12 HOURS
     Dates: start: 20100408

REACTIONS (11)
  - Device dislocation [None]
  - Medical device pain [None]
  - Stress [None]
  - Fear [None]
  - Anxiety [None]
  - Family stress [None]
  - Uterine perforation [None]
  - Injury [None]
  - Expired device used [None]
  - Depression [None]
  - Abdominal pain lower [None]

NARRATIVE: CASE EVENT DATE: 201004
